FAERS Safety Report 25548060 (Version 1)
Quarter: 2025Q3

REPORT INFORMATION
  Report Type: Spontaneous
  Country: CA (occurrence: CA)
  Receive Date: 20250714
  Receipt Date: 20250714
  Transmission Date: 20251020
  Serious: Yes (Life-Threatening, Hospitalization, Other)
  Sender: TEVA
  Company Number: CA-TEVA-VS-3349544

PATIENT
  Age: 6 Year
  Sex: Female

DRUGS (2)
  1. TOPOTECAN [Suspect]
     Active Substance: TOPOTECAN HYDROCHLORIDE
     Indication: Neuroblastoma
     Dosage: CONCENTRATE (DILUTE BEFORE USE). 1/3/4ML SINGLE-USE VIALS.DOSE FORM:SOLUTION INTRAVENOUS
     Route: 042
  2. CYCLOPHOSPHAMIDE [Suspect]
     Active Substance: CYCLOPHOSPHAMIDE
     Indication: Neuroblastoma
     Dosage: DOSE FORM:POWDER FOR SOLUTION INTRAVENOUS
     Route: 042

REACTIONS (2)
  - Neutropenia [Recovered/Resolved]
  - Pyrexia [Recovered/Resolved]
